FAERS Safety Report 13752970 (Version 4)
Quarter: 2017Q3

REPORT INFORMATION
  Report Type: Spontaneous
  Country: US (occurrence: US)
  Receive Date: 20170714
  Receipt Date: 20170718
  Transmission Date: 20171127
  Serious: Yes (Other)
  Sender: FDA-Public Use
  Company Number: US-GLAXOSMITHKLINE-US2017108240

PATIENT
  Age: 48 Year
  Sex: Male

DRUGS (1)
  1. TANZEUM [Suspect]
     Active Substance: ALBIGLUTIDE
     Indication: ACUTE PAINFUL NEUROPATHY OF RAPID GLYCAEMIC CONTROL
     Dosage: 50 MG, WE
     Route: 042

REACTIONS (11)
  - Blood glucose decreased [Unknown]
  - Hypoaesthesia [Not Recovered/Not Resolved]
  - Blood glucose increased [Unknown]
  - Underdose [Unknown]
  - Product use in unapproved indication [Unknown]
  - Wrong technique in device usage process [Unknown]
  - Device leakage [Unknown]
  - Paraesthesia [Not Recovered/Not Resolved]
  - Somnolence [Unknown]
  - Accidental exposure to product [Unknown]
  - Autonomic neuropathy [Unknown]

NARRATIVE: CASE EVENT DATE: 2017
